FAERS Safety Report 6593755-1 (Version None)
Quarter: 2010Q1

REPORT INFORMATION
  Report Type: 
  Country: None (occurrence: None)
  Receive Date: 20100218
  Receipt Date: 20100218
  Transmission Date: 20100710
  Serious: Yes (Disabling)
  Sender: FDA-Public Use
  Company Number: None

PATIENT
  Age: 65 Year
  Sex: Male
  Weight: 75.7507 kg

DRUGS (2)
  1. ZICAM NASAL SWABS (GEL) COLD REMEDY ONE SWAB EVERY 4 HRS 2X [Suspect]
     Indication: NASOPHARYNGITIS
     Dosage: 1 SWAB EVERY 4 HRS NASAL
     Route: 045
     Dates: start: 20090101
  2. ZICAM NASAL SWABS (GEL) COLD REMEDY ONE SWAB EVERY 4 HRS 2X [Suspect]
     Indication: UPPER RESPIRATORY TRACT INFECTION
     Dosage: 1 SWAB EVERY 4 HRS NASAL
     Route: 045
     Dates: start: 20090101

REACTIONS (2)
  - AGEUSIA [None]
  - ANOSMIA [None]
